FAERS Safety Report 24055061 (Version 2)
Quarter: 2024Q3

REPORT INFORMATION
  Report Type: Spontaneous
  Country: BR (occurrence: BR)
  Receive Date: 20240705
  Receipt Date: 20240715
  Transmission Date: 20241017
  Serious: Yes (Other)
  Sender: MERCK
  Company Number: BR-009507513-2407BRA000475

PATIENT
  Age: 65 Year

DRUGS (5)
  1. PEMBROLIZUMAB [Suspect]
     Active Substance: PEMBROLIZUMAB
     Dosage: UNK
  2. FLUOROURACIL\LEUCOVORIN CALCIUM\OXALIPLATIN [Suspect]
     Active Substance: FLUOROURACIL\LEUCOVORIN CALCIUM\OXALIPLATIN
  3. TRASTUZUMAB [Suspect]
     Active Substance: TRASTUZUMAB
  4. FLUOROURACIL [Suspect]
     Active Substance: FLUOROURACIL
  5. LEUCOVORIN [Suspect]
     Active Substance: LEUCOVORIN\LEUCOVORIN CALCIUM

REACTIONS (13)
  - Malignant neoplasm progression [Recovered/Resolved]
  - Neuropathy peripheral [Unknown]
  - Nausea [Recovered/Resolved]
  - Mucosal inflammation [Recovered/Resolved]
  - Diarrhoea [Recovered/Resolved]
  - Therapy partial responder [Unknown]
  - Fatigue [Unknown]
  - Blood thyroid stimulating hormone abnormal [Unknown]
  - Thyroxine free abnormal [Unknown]
  - Aspartate aminotransferase abnormal [Unknown]
  - Alanine aminotransferase abnormal [Unknown]
  - Gamma-glutamyltransferase abnormal [Unknown]
  - Blood alkaline phosphatase abnormal [Unknown]
